FAERS Safety Report 9257854 (Version 1)
Quarter: 2013Q2

REPORT INFORMATION
  Report Type: Report from Study
  Country: CA (occurrence: CA)
  Receive Date: 20130426
  Receipt Date: 20130426
  Transmission Date: 20140414
  Serious: Yes (Other)
  Sender: FDA-Public Use
  Company Number: CA-JNJFOC-20130412663

PATIENT
  Sex: Male
  Weight: 120.4 kg

DRUGS (14)
  1. REMICADE [Suspect]
     Indication: RHEUMATOID ARTHRITIS
     Route: 042
     Dates: start: 20050825
  2. RABEPRAZOLE [Concomitant]
     Route: 065
  3. BISOPROLOL [Concomitant]
     Route: 065
  4. FLOMAX [Concomitant]
     Route: 065
  5. LEFLUNOMIDE [Concomitant]
     Route: 065
  6. FOLIC ACID [Concomitant]
     Route: 065
  7. OXYCOCET [Concomitant]
     Route: 065
  8. LYRICA [Concomitant]
     Route: 065
  9. VITAMIN C [Concomitant]
     Route: 065
  10. VITAMIN B6 [Concomitant]
     Route: 065
  11. VITAMIN B12 [Concomitant]
     Route: 065
  12. TAMSULOSIN [Concomitant]
     Route: 065
  13. CANDESARTAN [Concomitant]
     Route: 065
  14. HYDROXYZINE [Concomitant]
     Route: 065

REACTIONS (1)
  - Type 2 diabetes mellitus [Unknown]
